FAERS Safety Report 7785014-6 (Version None)
Quarter: 2011Q3

REPORT INFORMATION
  Report Type: 
  Country: None (occurrence: None)
  Receive Date: 20110929
  Receipt Date: 20110922
  Transmission Date: 20111222
  Serious: Yes (Hospitalization)
  Sender: FDA-Public Use
  Company Number: US-BRISTOL-MYERS SQUIBB COMPANY-16075533

PATIENT
  Age: 53 Year
  Sex: Female
  Weight: 57 kg

DRUGS (4)
  1. IBUPROFEN [Concomitant]
     Dosage: 400MG Q8HRS PRN
     Route: 048
  2. IPILIMUMAB [Suspect]
     Indication: MALIGNANT MELANOMA
     Route: 042
     Dates: start: 20110815
  3. NAPROXEN (ALEVE) [Concomitant]
     Route: 048
  4. CALCIUM + VITAMIN D [Concomitant]
     Dosage: 1 DF = 1 TABS
     Route: 048

REACTIONS (1)
  - ANAEMIA [None]
